FAERS Safety Report 6011885-X (Version None)
Quarter: 2008Q4

REPORT INFORMATION
  Report Type: 
  Country: None (occurrence: None)
  Receive Date: 20081218
  Receipt Date: 20080926
  Transmission Date: 20090506
  Serious: Yes (Other)
  Sender: FDA-Public Use
  Company Number: US-ASTRAZENECA-2008UW20602

PATIENT
  Age: 43 Year
  Sex: Male

DRUGS (2)
  1. CRESTOR [Suspect]
     Route: 048
  2. ALLOPURINOL [Concomitant]
     Indication: GOUT

REACTIONS (3)
  - OEDEMA PERIPHERAL [None]
  - PAIN [None]
  - RHABDOMYOLYSIS [None]
